FAERS Safety Report 12330627 (Version 1)
Quarter: 2016Q2

REPORT INFORMATION
  Report Type: Spontaneous
  Country: US (occurrence: None)
  Receive Date: 20160503
  Receipt Date: 20160503
  Transmission Date: 20160815
  Serious: Yes (Hospitalization)
  Sender: FDA-Public Use
  Company Number: None

PATIENT
  Age: 34 Year
  Sex: Female
  Weight: 39.5 kg

DRUGS (1)
  1. IOPAMIDOL [Suspect]
     Active Substance: IOPAMIDOL
     Indication: COMPUTERISED TOMOGRAM

REACTIONS (5)
  - Malaise [None]
  - Eye movement disorder [None]
  - Seizure [None]
  - Injection site erythema [None]
  - Erythema [None]

NARRATIVE: CASE EVENT DATE: 20160501
